FAERS Safety Report 22207619 (Version 2)
Quarter: 2023Q2

REPORT INFORMATION
  Report Type: Spontaneous
  Country: US (occurrence: US)
  Receive Date: 20230413
  Receipt Date: 20230530
  Transmission Date: 20230722
  Serious: No
  Sender: FDA-Public Use
  Company Number: US-INCYTE CORPORATION-2023IN000225

PATIENT

DRUGS (1)
  1. OPZELURA [Suspect]
     Active Substance: RUXOLITINIB PHOSPHATE
     Indication: Eczema
     Route: 065

REACTIONS (4)
  - Eczema [Recovered/Resolved]
  - Application site laceration [Not Recovered/Not Resolved]
  - Product physical issue [Unknown]
  - Inappropriate schedule of product administration [Unknown]
